FAERS Safety Report 16663375 (Version 1)
Quarter: 2019Q3

REPORT INFORMATION
  Report Type: Report from Study
  Country: US (occurrence: US)
  Receive Date: 20190802
  Receipt Date: 20190802
  Transmission Date: 20191004
  Serious: Yes (Hospitalization)
  Sender: FDA-Public Use
  Company Number: US-EXELIXIS-CABO-19018111

PATIENT
  Sex: Male
  Weight: 68.27 kg

DRUGS (17)
  1. METHADONE HCL [Concomitant]
     Active Substance: METHADONE HYDROCHLORIDE
  2. CABOMETYX [Suspect]
     Active Substance: CABOZANTINIB S-MALATE
     Indication: RENAL CANCER
     Dosage: 60 MG, QD
     Route: 048
     Dates: start: 201802
  3. PANTOPRAZOLE SODIUM. [Concomitant]
     Active Substance: PANTOPRAZOLE SODIUM
  4. FLUTICASONE PROPIONATE. [Concomitant]
     Active Substance: FLUTICASONE PROPIONATE
  5. DIPHENOXYLATE/ATROPINE [Concomitant]
     Active Substance: ATROPINE\DIPHENOXYLATE
  6. AFINITOR [Concomitant]
     Active Substance: EVEROLIMUS
  7. CLONIDINE HCL [Concomitant]
     Active Substance: CLONIDINE HYDROCHLORIDE
  8. ENOXAPARIN SODIUM. [Concomitant]
     Active Substance: ENOXAPARIN SODIUM
  9. CYCLOBENZAPRINE HCL [Concomitant]
     Active Substance: CYCLOBENZAPRINE HYDROCHLORIDE
  10. HYDROMORPHONE HCL [Concomitant]
     Active Substance: HYDROMORPHONE HYDROCHLORIDE
  11. NUCYNTA [Concomitant]
     Active Substance: TAPENTADOL HYDROCHLORIDE
  12. PREDNISONE. [Concomitant]
     Active Substance: PREDNISONE
  13. LIDOCAINE. [Concomitant]
     Active Substance: LIDOCAINE
  14. GABAPENTIN. [Concomitant]
     Active Substance: GABAPENTIN
  15. LENVIMA [Concomitant]
     Active Substance: LENVATINIB
  16. VITAMIN C [Concomitant]
     Active Substance: ASCORBIC ACID
  17. NIFEDIPINE. [Concomitant]
     Active Substance: NIFEDIPINE

REACTIONS (3)
  - Weight decreased [Unknown]
  - Vomiting [Unknown]
  - Nausea [Unknown]

NARRATIVE: CASE EVENT DATE: 2018
